FAERS Safety Report 18670534 (Version 2)
Quarter: 2021Q1

REPORT INFORMATION
  Report Type: Spontaneous
  Country: FR (occurrence: FR)
  Receive Date: 20201228
  Receipt Date: 20210105
  Transmission Date: 20210419
  Serious: Yes (Life-Threatening, Hospitalization, Other)
  Sender: FDA-Public Use
  Company Number: FR-009507513-2012FRA011224

PATIENT
  Age: 77 Year
  Sex: Male
  Weight: 89 kg

DRUGS (2)
  1. TAZOCILLINE [Suspect]
     Active Substance: PIPERACILLIN SODIUM\TAZOBACTAM SODIUM
     Indication: LARGE INTESTINE INFECTION
     Route: 042
     Dates: start: 20201122, end: 20201129
  2. FIDAXOMICIN [Suspect]
     Active Substance: FIDAXOMICIN
     Indication: LARGE INTESTINE INFECTION
     Dosage: 1 DOSAGE FORM
     Route: 048
     Dates: start: 20201123, end: 20201130

REACTIONS (1)
  - Generalised tonic-clonic seizure [Not Recovered/Not Resolved]

NARRATIVE: CASE EVENT DATE: 20201126
